FAERS Safety Report 26120163 (Version 1)
Quarter: 2025Q4

REPORT INFORMATION
  Report Type: Report from Study
  Country: EU (occurrence: EU)
  Receive Date: 20251204
  Receipt Date: 20251204
  Transmission Date: 20260118
  Serious: Yes (Hospitalization, Other)
  Sender: ABBVIE
  Company Number: EU-ABBVIE-6389711

PATIENT
  Age: 61 Year
  Sex: Male

DRUGS (3)
  1. FOSCARBIDOPA\FOSLEVODOPA [Suspect]
     Active Substance: FOSCARBIDOPA\FOSLEVODOPA
     Indication: Parkinson^s disease
     Dosage: SD: 0.30 ML, CRN: 0.24 ML/H, CR:0.30 ML/H, CRH: 0.32 ML/H, ED: 0.15 ML.
     Route: 058
     Dates: start: 20250721, end: 20250724
  2. FOSCARBIDOPA\FOSLEVODOPA [Suspect]
     Active Substance: FOSCARBIDOPA\FOSLEVODOPA
     Dosage: SD: 0.30 ML, CRN: 0.24 ML/H, CR: 0.32 ML/H, CRH: 0.34 ML/H, ED: 0.15 ML. LAST ADMIN DATE: 2025
     Route: 058
     Dates: start: 20250724
  3. FOSCARBIDOPA\FOSLEVODOPA [Suspect]
     Active Substance: FOSCARBIDOPA\FOSLEVODOPA
     Dosage: SD: 0.30 ML, CRN: 0.24 ML/H, CR: 0.32 ML/H, CRH: 0.34 ML/H, ED: 0.20 ML. FIRST ADMIN DATE: 2025.
     Route: 058

REACTIONS (6)
  - Urinary tract disorder [Unknown]
  - Hypokinesia [Not Recovered/Not Resolved]
  - Therapeutic product effect incomplete [Not Recovered/Not Resolved]
  - Infusion site abscess [Not Recovered/Not Resolved]
  - Injection site erythema [Recovering/Resolving]
  - Infusion site inflammation [Recovering/Resolving]

NARRATIVE: CASE EVENT DATE: 20250101
